FAERS Safety Report 16955254 (Version 4)
Quarter: 2019Q4

REPORT INFORMATION
  Report Type: Report from Study
  Country: None (occurrence: US)
  Receive Date: 20191024
  Receipt Date: 20191203
  Transmission Date: 20200122
  Serious: Yes (Death, Other)
  Sender: FDA-Public Use
  Company Number: US-ABBVIE-19K-163-2975318-00

PATIENT
  Age: 65 Year
  Sex: Male
  Weight: 81.72 kg

DRUGS (2)
  1. VENCLEXTA [Suspect]
     Active Substance: VENETOCLAX
     Indication: CHRONIC MYELOMONOCYTIC LEUKAEMIA
     Dosage: PILL
     Route: 048
     Dates: start: 201907, end: 20190815
  2. VENCLEXTA [Suspect]
     Active Substance: VENETOCLAX
     Indication: CHRONIC MYELOID LEUKAEMIA

REACTIONS (8)
  - Metastases to liver [Fatal]
  - Off label use [Recovered/Resolved]
  - Vomiting [Recovered/Resolved]
  - Drug ineffective [Not Recovered/Not Resolved]
  - Ileus [Fatal]
  - Renal disorder [Not Recovered/Not Resolved]
  - Leukaemia [Fatal]
  - Aspiration [Fatal]

NARRATIVE: CASE EVENT DATE: 2019
